FAERS Safety Report 6140252-3 (Version None)
Quarter: 2009Q2

REPORT INFORMATION
  Report Type: 
  Country: None (occurrence: None)
  Receive Date: 20090401
  Receipt Date: 20090325
  Transmission Date: 20091009
  Serious: Yes (Death)
  Sender: FDA-Public Use
  Company Number: US-CELGENEUS-163-21880-09031891

PATIENT
  Sex: Male

DRUGS (2)
  1. REVLIMID [Suspect]
     Indication: MULTIPLE MYELOMA
     Route: 048
     Dates: start: 20081201, end: 20090301
  2. REVLIMID [Suspect]
     Route: 048
     Dates: start: 20080901, end: 20081101

REACTIONS (12)
  - ANAEMIA [None]
  - CHRONIC OBSTRUCTIVE PULMONARY DISEASE [None]
  - DIZZINESS [None]
  - DYSGEUSIA [None]
  - DYSPHAGIA [None]
  - LEUKOPENIA [None]
  - MOUTH ULCERATION [None]
  - PANCYTOPENIA [None]
  - PNEUMONIA ASPIRATION [None]
  - RENAL FAILURE [None]
  - SEPSIS [None]
  - WHITE BLOOD CELL COUNT DECREASED [None]
